FAERS Safety Report 5511524-8 (Version None)
Quarter: 2007Q4

REPORT INFORMATION
  Report Type: 
  Country: None (occurrence: None)
  Receive Date: 20071109
  Receipt Date: 20071031
  Transmission Date: 20080405
  Serious: Yes (Other)
  Sender: FDA-Public Use
  Company Number: B0494512A

PATIENT
  Age: 48 Year
  Sex: Female

DRUGS (1)
  1. ZYBAN [Suspect]
     Indication: SMOKING CESSATION THERAPY
     Dosage: 2TAB PER DAY
     Dates: start: 20071019

REACTIONS (4)
  - NERVOUSNESS [None]
  - PALPITATIONS [None]
  - POOR QUALITY SLEEP [None]
  - TENSION [None]
